FAERS Safety Report 24444170 (Version 2)
Quarter: 2024Q4

REPORT INFORMATION
  Report Type: Report from Study
  Country: US (occurrence: US)
  Receive Date: 20241016
  Receipt Date: 20241017
  Transmission Date: 20250115
  Serious: No
  Sender: ROCHE
  Company Number: US-ROCHE-2371692

PATIENT
  Age: 68 Year
  Sex: Male

DRUGS (17)
  1. RITUXAN [Suspect]
     Active Substance: RITUXIMAB
     Indication: Arteritis
     Dosage: ANTICIPATED DATE OF TREATMENT: 21/DEC/2021
     Route: 042
  2. RITUXAN [Suspect]
     Active Substance: RITUXIMAB
     Indication: Anti-neutrophil cytoplasmic antibody positive vasculitis
     Route: 042
  3. RITUXAN [Suspect]
     Active Substance: RITUXIMAB
     Route: 042
     Dates: start: 20201222
  4. RITUXAN [Suspect]
     Active Substance: RITUXIMAB
     Dosage: INFUSE 1000MG INTRAVENOUSLY ON DAY(S) 1 AND DAY(S) 15 EVERY 6 MONTH(S)
     Route: 042
  5. RITUXAN [Suspect]
     Active Substance: RITUXIMAB
     Dosage: 500 MG SINGLE-USE VIAL
     Route: 042
     Dates: start: 20230720
  6. ELIQUIS [Concomitant]
     Active Substance: APIXABAN
  7. NEURONTIN [Concomitant]
     Active Substance: GABAPENTIN
     Route: 048
  8. ZESTRIL [Concomitant]
     Active Substance: LISINOPRIL
     Route: 048
  9. DELTASONE [Concomitant]
     Active Substance: PREDNISONE
     Route: 048
  10. OMEGA 3 [Concomitant]
     Active Substance: CAPSAICIN
     Route: 048
  11. LIPITOR [Concomitant]
     Active Substance: ATORVASTATIN CALCIUM
  12. PEPCID [Concomitant]
     Active Substance: FAMOTIDINE
  13. NORVASC [Concomitant]
     Active Substance: AMLODIPINE BESYLATE
  14. ERGOCALCIFEROL [Concomitant]
     Active Substance: ERGOCALCIFEROL
  15. XALATAN [Concomitant]
     Active Substance: LATANOPROST
  16. ULTRAM [Concomitant]
     Active Substance: TRAMADOL HYDROCHLORIDE
  17. LIPITOR [Concomitant]
     Active Substance: ATORVASTATIN CALCIUM

REACTIONS (2)
  - Off label use [Unknown]
  - Product prescribing error [Unknown]
